FAERS Safety Report 11225040 (Version 10)
Quarter: 2017Q1

REPORT INFORMATION
  Report Type: Spontaneous
  Country: US (occurrence: US)
  Receive Date: 20150629
  Receipt Date: 20170103
  Transmission Date: 20170428
  Serious: Yes (Hospitalization, Other)
  Sender: FDA-Public Use
  Company Number: US-PFIZER INC-2015211222

PATIENT
  Age: 73 Year
  Sex: Male
  Weight: 100 kg

DRUGS (28)
  1. LYRICA [Suspect]
     Active Substance: PREGABALIN
     Indication: ARTHRALGIA
     Dosage: 150 MG, 4X/DAY
     Route: 048
     Dates: start: 201503
  2. LYRICA [Suspect]
     Active Substance: PREGABALIN
     Dosage: 200 MG, 4X/DAY (EVERY 6 HOURS)
     Route: 048
     Dates: start: 2015
  3. EFFEXOR [Concomitant]
     Active Substance: VENLAFAXINE HYDROCHLORIDE
     Dosage: UNK
     Dates: start: 2015
  4. FENOFIBRATE. [Concomitant]
     Active Substance: FENOFIBRATE
     Indication: BLOOD TRIGLYCERIDES ABNORMAL
     Dosage: 1 DF, DAILY
     Dates: start: 2013
  5. VENLAFAXINE [Concomitant]
     Active Substance: VENLAFAXINE HYDROCHLORIDE
     Dosage: 37.5 MG, DAILY
     Route: 048
     Dates: start: 201502
  6. BABY ASPIRIN [Concomitant]
     Active Substance: ASPIRIN
     Dosage: UNK UNK, 1X/DAY
     Dates: start: 2012
  7. VITAMIN D [Concomitant]
     Active Substance: CHOLECALCIFEROL
     Indication: VITAMIN D DEFICIENCY
     Dosage: 5000 MG, 2X/WEEK
     Dates: start: 2015
  8. VITAMIN E [Concomitant]
     Active Substance: .ALPHA.-TOCOPHEROL
     Indication: CARDIAC DISORDER
     Dosage: UNK
     Dates: start: 2015
  9. DIAZEPAM. [Concomitant]
     Active Substance: DIAZEPAM
     Dosage: 10 MG, 2X/DAY
     Route: 048
  10. LYRICA [Suspect]
     Active Substance: PREGABALIN
     Dosage: 200 MG, 3X/DAY
     Route: 048
  11. ATORVASTATIN [Concomitant]
     Active Substance: ATORVASTATIN
     Dosage: UNK
  12. LYRICA [Suspect]
     Active Substance: PREGABALIN
     Indication: PAIN
     Dosage: 200 MG, 4X/DAY
     Route: 048
     Dates: start: 201502
  13. LYRICA [Suspect]
     Active Substance: PREGABALIN
     Indication: BURNING SENSATION
     Dosage: 200 MG, DAILY
     Route: 048
     Dates: start: 201502
  14. LYRICA [Suspect]
     Active Substance: PREGABALIN
     Dosage: 800 MG, DAILY (200 MG FOUR CAPSULES DAILY)
     Route: 048
     Dates: start: 201502
  15. LOSARTAN. [Concomitant]
     Active Substance: LOSARTAN
     Indication: BLOOD PRESSURE MEASUREMENT
     Dosage: 1 DF, 2X/DAY
     Dates: start: 2000
  16. PERCOCET [Concomitant]
     Active Substance: ACETAMINOPHEN\OXYCODONE HYDROCHLORIDE
     Indication: PAIN
     Dosage: 10/325 MG TABLETS THREE OR FOUR DAILY
  17. FENOFIBRATE. [Concomitant]
     Active Substance: FENOFIBRATE
     Dosage: 134 MG, DAILY WITH A MEAL
     Route: 048
  18. POLYETHYLENE GLYCOL 3350. [Concomitant]
     Active Substance: POLYETHYLENE GLYCOL 3350
     Dosage: 17 G, DAILY (17 GRAMS ORALLY DAILY MIXED WITH 8 OUNCES OF FLUID)
     Route: 048
  19. LYRICA [Suspect]
     Active Substance: PREGABALIN
     Dosage: 75 MG, 4X/DAY
     Route: 048
  20. LOSARTAN POTASSIUM. [Concomitant]
     Active Substance: LOSARTAN POTASSIUM
     Indication: BLOOD PRESSURE ABNORMAL
     Dosage: 25 MG, 2X/DAY
     Route: 048
     Dates: start: 2000
  21. LOVASTATIN. [Concomitant]
     Active Substance: LOVASTATIN
     Indication: BLOOD CHOLESTEROL ABNORMAL
     Dosage: 20 MG, NIGHTLY
     Route: 048
     Dates: start: 2000
  22. LOVASTATIN. [Concomitant]
     Active Substance: LOVASTATIN
     Dosage: 1 DF, DAILY
     Dates: end: 20160118
  23. VENLAFAXINE [Concomitant]
     Active Substance: VENLAFAXINE HYDROCHLORIDE
     Indication: DEPRESSION
     Dosage: UNK
     Route: 048
     Dates: start: 2000
  24. OXYCODONE AND ACETAMINOPHEN [Concomitant]
     Active Substance: ACETAMINOPHEN\OXYCODONE HYDROCHLORIDE
     Dosage: 1 DF, 4X/DAY (OXYCODONE 10MG -ACETAMINOPHEN 325MG)
     Route: 048
  25. PROMETHAZINE [Concomitant]
     Active Substance: PROMETHAZINE\PROMETHAZINE HYDROCHLORIDE
     Dosage: 25 MG, AS NEEDED (1 TABLET ORALLY EVERY 12 HOURS AS NEEDED)
     Route: 048
  26. VENLAFAXINE [Concomitant]
     Active Substance: VENLAFAXINE HYDROCHLORIDE
     Dosage: 75 MG, DAILY WITH FOOD
     Route: 048
  27. LYRICA [Suspect]
     Active Substance: PREGABALIN
     Indication: NEUROPATHY PERIPHERAL
     Dosage: 50 MG, 3X/DAY
     Route: 048
     Dates: start: 20150210
  28. FENOFIBRATE. [Concomitant]
     Active Substance: FENOFIBRATE
     Dosage: 134 MG, UNK
     Dates: start: 2014

REACTIONS (20)
  - Bladder disorder [Recovering/Resolving]
  - Weight increased [Recovered/Resolved]
  - Drug ineffective [Recovered/Resolved]
  - Poor quality sleep [Recovered/Resolved]
  - Suicidal ideation [Recovered/Resolved]
  - Hyperphagia [Recovered/Resolved]
  - Prescribed overdose [Recovered/Resolved]
  - Gait disturbance [Recovered/Resolved]
  - Cataract [Unknown]
  - Fall [Recovered/Resolved]
  - Disorientation [Recovered/Resolved]
  - Product use issue [Unknown]
  - Arthropathy [Recovered/Resolved]
  - Urinary incontinence [Recovered/Resolved]
  - Micturition urgency [Recovered/Resolved]
  - Somnolence [Recovered/Resolved]
  - Muscular weakness [Recovered/Resolved]
  - Agitation [Recovered/Resolved]
  - Burning sensation [Recovered/Resolved]
  - Intentional product misuse [Recovered/Resolved]

NARRATIVE: CASE EVENT DATE: 2015
